FAERS Safety Report 7312548-0 (Version None)
Quarter: 2011Q1

REPORT INFORMATION
  Report Type: 
  Country: None (occurrence: None)
  Receive Date: 20110224
  Receipt Date: 20110209
  Transmission Date: 20110831
  Serious: Yes (Hospitalization)
  Sender: FDA-Public Use
  Company Number: FR-GENENTECH-313875

PATIENT
  Sex: Female

DRUGS (32)
  1. DOXORUBICIN HCL [Suspect]
     Indication: DIFFUSE LARGE B-CELL LYMPHOMA
     Dosage: 120 MG, UNK
     Route: 042
     Dates: start: 20101127
  2. ELDISINE [Suspect]
     Dosage: 3.4 MG, UNK
     Route: 042
     Dates: start: 20101213, end: 20101213
  3. TRUVADA [Concomitant]
     Indication: PRODUCT USED FOR UNKNOWN INDICATION
     Dosage: 200 MG, QAM
  4. METHOTREXATE [Suspect]
     Dosage: 15 MG, UNK
     Route: 037
     Dates: start: 20101213, end: 20101213
  5. NORVIR [Concomitant]
     Indication: PRODUCT USED FOR UNKNOWN INDICATION
     Dosage: 100 MG, QAM
     Dates: end: 20101125
  6. MABTHERA [Suspect]
     Indication: DIFFUSE LARGE B-CELL LYMPHOMA
     Dosage: 600 MG, UNK
     Route: 042
     Dates: start: 20101126
  7. METHOTREXATE [Suspect]
     Indication: DIFFUSE LARGE B-CELL LYMPHOMA
     Dosage: 15 MG, UNK
     Route: 037
     Dates: start: 20101118
  8. ENDOXAN [Suspect]
     Dosage: 2 G, UNK
     Route: 042
  9. EUPANTOL [Concomitant]
     Indication: PRODUCT USED FOR UNKNOWN INDICATION
     Dosage: UNK
     Dates: start: 20101121
  10. ACICLOVIR [Concomitant]
     Indication: PRODUCT USED FOR UNKNOWN INDICATION
     Dosage: UNK
     Dates: start: 20101203
  11. BLEOMYCIN SULFATE [Suspect]
     Indication: DIFFUSE LARGE B-CELL LYMPHOMA
     Dosage: 10.2 MG, UNK
     Route: 042
     Dates: start: 20101125
  12. DOXORUBICIN HCL [Suspect]
     Dosage: 120 MG, UNK
     Route: 042
     Dates: start: 20101211, end: 20101212
  13. ELDISINE [Suspect]
     Indication: DIFFUSE LARGE B-CELL LYMPHOMA
     Dosage: 3.4 MG, UNK
     Route: 042
     Dates: start: 20101125
  14. SOLIAN [Concomitant]
     Indication: PRODUCT USED FOR UNKNOWN INDICATION
     Dosage: UNK
     Dates: start: 20101123
  15. ISENTRESS [Concomitant]
     Indication: PRODUCT USED FOR UNKNOWN INDICATION
     Dosage: UNK
  16. MABTHERA [Suspect]
     Dosage: 600 MG, UNK
     Route: 042
  17. BLEOMYCIN SULFATE [Suspect]
     Dosage: 10.2 MG, UNK
     Route: 042
     Dates: start: 20101213, end: 20101213
  18. ENDOXAN [Suspect]
     Indication: DIFFUSE LARGE B-CELL LYMPHOMA
     Dosage: 2 G, UNK
     Route: 042
     Dates: start: 20101126
  19. ENDOXAN [Suspect]
     Dosage: 2 G, UNK
     Route: 042
     Dates: start: 20101210, end: 20101210
  20. ELDISINE [Suspect]
     Dosage: 3.4 MG, UNK
     Route: 042
     Dates: start: 20101129
  21. ALLOPURINOL [Concomitant]
     Indication: PRODUCT USED FOR UNKNOWN INDICATION
     Dosage: UNK
     Dates: start: 20101119
  22. ATARAX [Concomitant]
     Indication: PRODUCT USED FOR UNKNOWN INDICATION
     Dosage: UNK
  23. OXYCONTIN [Concomitant]
     Indication: PRODUCT USED FOR UNKNOWN INDICATION
     Dosage: UNK
  24. MABTHERA [Suspect]
     Dosage: 600 MG, UNK
     Route: 042
     Dates: start: 20101210, end: 20101210
  25. BLEOMYCIN SULFATE [Suspect]
     Dosage: 10.2 MG, UNK
     Route: 042
     Dates: start: 20101129
  26. DOXORUBICIN HCL [Suspect]
     Dosage: 120 MG, UNK
     Route: 042
  27. REYATAZ [Concomitant]
     Indication: PRODUCT USED FOR UNKNOWN INDICATION
     Dosage: 300 MG, QAM
     Dates: end: 20101125
  28. SERESTA [Concomitant]
     Indication: PRODUCT USED FOR UNKNOWN INDICATION
     Dosage: 50 MG, QAM
  29. BLEOMYCIN SULFATE [Suspect]
     Dosage: 10.2 MG, UNK
     Route: 042
     Dates: start: 20101209
  30. METHOTREXATE [Suspect]
     Dosage: 15 MG, UNK
     Route: 037
  31. ELDISINE [Suspect]
     Dosage: 3.4 MG, UNK
     Route: 042
     Dates: start: 20101209
  32. OXYNORM [Concomitant]
     Indication: PRODUCT USED FOR UNKNOWN INDICATION
     Dosage: 5 MG, PRN

REACTIONS (1)
  - PALMAR-PLANTAR ERYTHRODYSAESTHESIA SYNDROME [None]
